FAERS Safety Report 15739739 (Version 1)
Quarter: 2018Q4

REPORT INFORMATION
  Report Type: Spontaneous
  Country: GB (occurrence: GB)
  Receive Date: 20181219
  Receipt Date: 20181219
  Transmission Date: 20190205
  Serious: Yes (Disabling)
  Sender: FDA-Public Use
  Company Number: IND-GB-009507513-1812GBR008086

PATIENT
  Age: 86 Year
  Sex: Female
  Weight: 65 kg

DRUGS (9)
  1. ARCOXIA [Suspect]
     Active Substance: ETORICOXIB
     Dosage: 30 MILLIGRAM
     Dates: start: 20050104
  2. LORAZEPAM. [Concomitant]
     Active Substance: LORAZEPAM
     Dosage: 0.5MG ONCE A DAY.
     Dates: start: 20181122
  3. LEVOTHYROXINE SODIUM. [Concomitant]
     Active Substance: LEVOTHYROXINE SODIUM
     Dosage: BLOOD TEST ANNUALLY
     Dates: start: 20180606
  4. MOMETASONE FUROATE. [Concomitant]
     Active Substance: MOMETASONE FUROATE
     Dosage: THINLY AS DIRECTED.
     Dates: start: 20180920, end: 20180921
  5. DONEPEZIL HYDROCHLORIDE. [Concomitant]
     Active Substance: DONEPEZIL HYDROCHLORIDE
     Dates: start: 20181011
  6. UNGUENTUM M [Concomitant]
     Dosage: 1 DOSAGE FORM, AS NECESSARY
     Dates: start: 20180703, end: 20181011
  7. CROTAMITON [Concomitant]
     Active Substance: CROTAMITON
     Indication: PRURITUS
     Dosage: 2 DOSAGE FORM, QD
     Dates: start: 20181025, end: 20181124
  8. ACETAMINOPHEN. [Concomitant]
     Active Substance: ACETAMINOPHEN
     Dosage: 8 DOSAGE FORM, QD
     Dates: start: 20180521
  9. PREGABALIN. [Concomitant]
     Active Substance: PREGABALIN
     Dosage: EVERY NIGHT
     Dates: start: 20180726

REACTIONS (2)
  - Malaise [Unknown]
  - Dizziness [Recovered/Resolved]

NARRATIVE: CASE EVENT DATE: 20181128
